FAERS Safety Report 4966857-0 (Version None)
Quarter: 2006Q2

REPORT INFORMATION
  Report Type: 
  Country: None (occurrence: None)
  Receive Date: 20060407
  Receipt Date: 20050930
  Transmission Date: 20061013
  Serious: Yes (Hospitalization)
  Sender: FDA-Public Use
  Company Number: US-MERCK-0510USA01406

PATIENT
  Age: 59 Year
  Sex: Male
  Weight: 91 kg

DRUGS (3)
  1. VIOXX [Suspect]
     Indication: ARTHRITIS
     Route: 048
  2. VIOXX [Suspect]
     Indication: BACK PAIN
     Route: 048
  3. IBUPROFEN [Concomitant]
     Route: 065

REACTIONS (4)
  - ACCIDENT AT WORK [None]
  - ARTERIAL OCCLUSIVE DISEASE [None]
  - LIMB INJURY [None]
  - NEPHROLITHIASIS [None]
